FAERS Safety Report 7492632-1 (Version None)
Quarter: 2011Q2

REPORT INFORMATION
  Report Type: 
  Country: None (occurrence: None)
  Receive Date: 20110519
  Receipt Date: 20110513
  Transmission Date: 20111010
  Serious: Yes (Death, Hospitalization, Other)
  Sender: FDA-Public Use
  Company Number: IT-ELI_LILLY_AND_COMPANY-IT201103008871

PATIENT
  Sex: Male

DRUGS (6)
  1. ANTIHYPERTENSIVES [Concomitant]
  2. ALIMTA [Suspect]
     Indication: LUNG ADENOCARCINOMA
     Dosage: 850 MG, PER CYCLE.
     Route: 042
     Dates: start: 20110211, end: 20110304
  3. ORAL ANTIDIABETICS [Concomitant]
  4. CARBOPLATIN [Concomitant]
     Dosage: 295 MG, UNKNOWN
     Route: 065
  5. VITAMIN B-12 [Concomitant]
  6. FOLIC ACID [Concomitant]

REACTIONS (5)
  - MULTI-ORGAN FAILURE [None]
  - FEBRILE BONE MARROW APLASIA [None]
  - GASTROINTESTINAL TOXICITY [None]
  - HYPERPYREXIA [None]
  - DEHYDRATION [None]
